FAERS Safety Report 9183894 (Version 1)
Quarter: 2012Q4

REPORT INFORMATION
  Report Type: 
  Country: BR (occurrence: BR)
  Receive Date: 20121030
  Receipt Date: 20121030
  Transmission Date: 20130627
  Serious: Yes (Other)
  Sender: FDA-Public Use
  Company Number: BR-ELI_LILLY_AND_COMPANY-BR201210006299

PATIENT
  Sex: Male
  Weight: 80 kg

DRUGS (6)
  1. CIALIS [Suspect]
     Indication: ERECTILE DYSFUNCTION
     Dosage: 5 mg, each evening
     Route: 048
     Dates: start: 20121013
  2. DILACORON [Concomitant]
     Indication: CARDIAC DISORDER
     Dosage: 80 mg, bid
     Route: 065
  3. SELOZOK [Concomitant]
     Indication: CARDIAC DISORDER
     Dosage: 50 mg, bid
     Route: 065
  4. LIPIDIL [Concomitant]
     Indication: BLOOD CHOLESTEROL
     Dosage: 200 mg, qd
     Route: 065
  5. ALDAZIDA [Concomitant]
     Indication: DIURETIC THERAPY
     Dosage: 50 mg, 3/W
  6. CRESTOR [Concomitant]
     Indication: BLOOD CHOLESTEROL
     Dosage: 20 mg, qd
     Route: 065

REACTIONS (2)
  - Abasia [Not Recovered/Not Resolved]
  - Back pain [Not Recovered/Not Resolved]
